FAERS Safety Report 10482170 (Version 2)
Quarter: 2014Q3

REPORT INFORMATION
  Report Type: Report from Study
  Country: CA (occurrence: CA)
  Receive Date: 20140929
  Receipt Date: 20140929
  Transmission Date: 20150326
  Serious: Yes (Other)
  Sender: FDA-Public Use
  Company Number: CA-BRISTOL-MYERS SQUIBB COMPANY-21181383

PATIENT
  Age: 68 Year
  Sex: Male

DRUGS (12)
  1. ABATACEPT [Suspect]
     Active Substance: ABATACEPT
     Indication: RHEUMATOID ARTHRITIS
     Dosage: LOT NUM: 4C89733, EXP.DATE: AUG-2014.
     Route: 042
     Dates: start: 20090723
  2. APO-HYDROXYQUINE [Concomitant]
  3. METHOTREXATE [Concomitant]
     Active Substance: METHOTREXATE
  4. FOLIC ACID. [Concomitant]
     Active Substance: FOLIC ACID
  5. VITAMIN D [Concomitant]
     Active Substance: CHOLECALCIFEROL
  6. PRAVASTATIN SODIUM. [Concomitant]
     Active Substance: PRAVASTATIN SODIUM
  7. OMEPRAZOL E [Concomitant]
     Active Substance: OMEPRAZOLE
  8. LYRICA [Concomitant]
     Active Substance: PREGABALIN
  9. SALAGEN [Concomitant]
     Active Substance: PILOCARPINE HYDROCHLORIDE
  10. ASAPHEN [Concomitant]
     Active Substance: ASPIRIN
  11. CELEBREX [Concomitant]
     Active Substance: CELECOXIB
  12. CALCIUM [Concomitant]
     Active Substance: CALCIUM

REACTIONS (4)
  - Abdominal pain [Unknown]
  - Cough [Not Recovered/Not Resolved]
  - Asthma [Recovering/Resolving]
  - Precancerous skin lesion [Unknown]

NARRATIVE: CASE EVENT DATE: 201404
